FAERS Safety Report 6183075-1 (Version None)
Quarter: 2009Q2

REPORT INFORMATION
  Report Type: 
  Country: None (occurrence: None)
  Receive Date: 20090507
  Receipt Date: 20090428
  Transmission Date: 20091009
  Serious: Yes (Hospitalization, Other)
  Sender: FDA-Public Use
  Company Number: US-ELI_LILLY_AND_COMPANY-US200904006649

PATIENT
  Age: 44 Year
  Sex: Female

DRUGS (1)
  1. ZYPREXA [Suspect]
     Indication: NERVOUSNESS
     Dosage: 1 D/F, UNK

REACTIONS (10)
  - BLOOD CHOLESTEROL INCREASED [None]
  - CARDIAC DISORDER [None]
  - CEREBROVASCULAR ACCIDENT [None]
  - COMMUNICATION DISORDER [None]
  - DIABETES MELLITUS [None]
  - HYPERTENSION [None]
  - HYSTERECTOMY [None]
  - MALAISE [None]
  - THROMBOSIS [None]
  - WEIGHT INCREASED [None]
